FAERS Safety Report 16783920 (Version 1)
Quarter: 2019Q3

REPORT INFORMATION
  Report Type: Spontaneous
  Country: US (occurrence: US)
  Receive Date: 20190909
  Receipt Date: 20190909
  Transmission Date: 20191005
  Serious: No
  Sender: FDA-Public Use
  Company Number: US-STRIDES ARCOLAB LIMITED-2018SP009762

PATIENT

DRUGS (3)
  1. TACROLIMUS. [Suspect]
     Active Substance: TACROLIMUS
     Indication: RENAL TRANSPLANT
     Dosage: UNK
     Route: 065
  2. SOFOSBUVIR [Interacting]
     Active Substance: SOFOSBUVIR
     Indication: HEPATITIS C
     Dosage: 400 MG/DAY
     Route: 065
  3. LEDIPASVIR [Interacting]
     Active Substance: LEDIPASVIR
     Indication: HEPATITIS C
     Dosage: 90 MG/DAY
     Route: 065

REACTIONS (2)
  - Drug level changed [Unknown]
  - Drug interaction [Unknown]
